FAERS Safety Report 6188117-5 (Version None)
Quarter: 2009Q2

REPORT INFORMATION
  Report Type: 
  Country: None (occurrence: None)
  Receive Date: 20090513
  Receipt Date: 20090504
  Transmission Date: 20091009
  Serious: Yes (Other)
  Sender: FDA-Public Use
  Company Number: CA-BAYER-200920197NA

PATIENT
  Age: 32 Year
  Sex: Female
  Weight: 73 kg

DRUGS (1)
  1. MAGNEVIST [Suspect]
     Indication: NUCLEAR MAGNETIC RESONANCE IMAGING
     Dosage: TOTAL DAILY DOSE: 15 DF
     Route: 042
     Dates: start: 20090423, end: 20090423

REACTIONS (1)
  - URTICARIA [None]
